FAERS Safety Report 7420260-2 (Version None)
Quarter: 2011Q2

REPORT INFORMATION
  Report Type: 
  Country: None (occurrence: None)
  Receive Date: 20110418
  Receipt Date: 20110412
  Transmission Date: 20111010
  Serious: Yes (Hospitalization)
  Sender: FDA-Public Use
  Company Number: US-SANOFI-AVENTIS-2011SA022805

PATIENT
  Age: 72 Year
  Sex: Male

DRUGS (11)
  1. HYDROCHLOROTHIAZIDE [Concomitant]
  2. VITAMIN D [Concomitant]
  3. POTASSIUM CHLORIDE [Concomitant]
  4. MULTAQ [Suspect]
     Indication: ATRIAL FIBRILLATION
     Route: 048
     Dates: start: 20100921
  5. LIPITOR [Concomitant]
  6. CALCIUM [Concomitant]
  7. COUMADIN [Concomitant]
     Dates: start: 20100801
  8. POTASSIUM [Concomitant]
  9. OMEPRAZOLE [Concomitant]
  10. MULTI-VITAMINS [Concomitant]
  11. TAMSULOSIN [Concomitant]

REACTIONS (1)
  - ATRIAL FIBRILLATION [None]
